FAERS Safety Report 8831481 (Version 1)
Quarter: 2012Q4

REPORT INFORMATION
  Report Type: 
  Country: US (occurrence: US)
  Receive Date: 20121008
  Receipt Date: 20121008
  Transmission Date: 20130627
  Serious: Yes (Hospitalization)
  Sender: FDA-Public Use
  Company Number: US-GLAXOSMITHKLINE-A0996134A

PATIENT
  Age: 21 Year
  Sex: Female

DRUGS (3)
  1. LAMICTAL [Suspect]
     Indication: BIPOLAR DISORDER
     Dosage: 100MG Per day
     Route: 048
     Dates: start: 201208, end: 201209
  2. WELLBUTRIN [Suspect]
     Indication: BIPOLAR DISORDER
     Route: 048
     Dates: start: 201209
  3. NO CONCURRENT MEDICATION [Concomitant]

REACTIONS (13)
  - Hepatic function abnormal [Not Recovered/Not Resolved]
  - Back pain [Unknown]
  - Abdominal pain [Unknown]
  - Nausea [Unknown]
  - Fatigue [Unknown]
  - Oral mucosal blistering [Unknown]
  - Rash generalised [Unknown]
  - Swelling face [Unknown]
  - Local swelling [Unknown]
  - Jaundice [Unknown]
  - Blood bilirubin increased [Unknown]
  - Liver disorder [Unknown]
  - Pruritus [Unknown]
